FAERS Safety Report 13893855 (Version 1)
Quarter: 2017Q3

REPORT INFORMATION
  Report Type: Not Available
  Country: None (occurrence: US)
  Receive Date: 20170822
  Receipt Date: 20170822
  Transmission Date: 20171127
  Serious: No
  Sender: FDA-Public Use
  Company Number: US-AKORN-63561

PATIENT
  Sex: Male

DRUGS (1)
  1. ERYTHROMYCIN OPHTHALMIC OINTMENT, USP [Suspect]
     Active Substance: ERYTHROMYCIN

REACTIONS (3)
  - Ocular hyperaemia [None]
  - Vision blurred [None]
  - Eye swelling [Recovered/Resolved]
